FAERS Safety Report 19582803 (Version 2)
Quarter: 2022Q1

REPORT INFORMATION
  Report Type: Report from Study
  Country: IT (occurrence: IT)
  Receive Date: 20210719
  Receipt Date: 20220105
  Transmission Date: 20220423
  Serious: Yes (Hospitalization)
  Sender: FDA-Public Use
  Company Number: IT-CELLTRION INC.-2020IT018177

PATIENT

DRUGS (55)
  1. TRASTUZUMAB [Suspect]
     Active Substance: TRASTUZUMAB
     Indication: Breast cancer
     Dosage: 564 MG EVERY 3 WEEKS
     Route: 041
     Dates: start: 20170428, end: 20170519
  2. TRASTUZUMAB [Suspect]
     Active Substance: TRASTUZUMAB
     Indication: HER2 positive breast cancer
     Dosage: 540 MG EVERY 3 WEEKS
     Route: 041
     Dates: start: 20170519, end: 20180510
  3. TRASTUZUMAB [Suspect]
     Active Substance: TRASTUZUMAB
     Dosage: 600 MG EVERY 3 WEEKS; MOST RECENT DOSE PRIOR TO THE EVENT: 14/FEB/2019
     Route: 041
     Dates: start: 20181120
  4. TRASTUZUMAB [Suspect]
     Active Substance: TRASTUZUMAB
     Dosage: 760 MG EVERY 3 WEEKS
     Route: 041
     Dates: start: 20170407, end: 20170407
  5. TRASTUZUMAB [Suspect]
     Active Substance: TRASTUZUMAB
     Indication: Breast cancer
     Dosage: 528 MG EVERY 3 WEEKS/TRASTUZUMAB BIOSIMILAR
     Route: 041
     Dates: start: 20190307, end: 20190509
  6. TRASTUZUMAB [Suspect]
     Active Substance: TRASTUZUMAB
     Indication: HER2 positive breast cancer
  7. EPIRUBICIN [Suspect]
     Active Substance: EPIRUBICIN
     Indication: Breast cancer
     Dosage: 48 MG, 1/WEEK; MOST RECENT DOSE : 08/AUG/2019
     Route: 042
     Dates: start: 20190622
  8. EPIRUBICIN [Suspect]
     Active Substance: EPIRUBICIN
     Indication: HER2 positive breast cancer
  9. EXEMESTANE [Suspect]
     Active Substance: EXEMESTANE
     Indication: Breast cancer
     Dosage: 25 MG, O.D - ONCE DAILY
     Route: 048
     Dates: start: 20171207, end: 20180604
  10. EXEMESTANE [Suspect]
     Active Substance: EXEMESTANE
     Indication: HER2 positive breast cancer
  11. LETROZOLE [Suspect]
     Active Substance: LETROZOLE
     Indication: Breast cancer
     Dosage: 2.5 MG, QD
     Route: 048
     Dates: start: 20170616, end: 20171207
  12. LETROZOLE [Suspect]
     Active Substance: LETROZOLE
     Indication: HER2 positive breast cancer
     Dosage: 2.5 MG, QD; MOST RECENT DOSE PRIOR TO THE EVENT: 24/MAY/2019
     Route: 048
     Dates: start: 20181109
  13. PACLITAXEL [Suspect]
     Active Substance: PACLITAXEL
     Indication: Breast cancer
     Dosage: 160 MG, 1/WEEK (LAST DOSE 02JUN2017)
     Route: 042
     Dates: start: 20170407
  14. PACLITAXEL [Suspect]
     Active Substance: PACLITAXEL
     Indication: HER2 positive breast cancer
  15. PERTUZUMAB [Suspect]
     Active Substance: PERTUZUMAB
     Indication: Breast cancer
     Dosage: 840 MG, EVERY 3 WEEKS
     Route: 042
     Dates: start: 20170407, end: 20170407
  16. PERTUZUMAB [Suspect]
     Active Substance: PERTUZUMAB
     Indication: HER2 positive breast cancer
     Dosage: 420 MG EVERY 3 WEEKS; MOST RECENT DOSE PRIOR TO THE EVENT: 10/MAY/2018
     Route: 042
     Dates: start: 20170428
  17. ADO-TRASTUZUMAB EMTANSINE [Suspect]
     Active Substance: ADO-TRASTUZUMAB EMTANSINE
     Indication: Breast cancer
     Dosage: 324 MG EVERY 3 WEEKS; LAST DOSE 29AUG2018
     Route: 042
     Dates: start: 20180606
  18. ADO-TRASTUZUMAB EMTANSINE [Suspect]
     Active Substance: ADO-TRASTUZUMAB EMTANSINE
     Indication: HER2 positive breast cancer
  19. ALLOPURINOL [Concomitant]
     Active Substance: ALLOPURINOL
     Dosage: 300 MG; ONGOING = NOT CHECKED
     Route: 048
     Dates: end: 20190913
  20. ALPRAZOLAM [Concomitant]
     Active Substance: ALPRAZOLAM
     Indication: Anxiety
     Dosage: 0.13 MICROGRAM EVERY 0.33 DAY (ONGOING = NOT CHECKED)
     Route: 048
     Dates: start: 20190530, end: 20190913
  21. AMOXICILLIN [Concomitant]
     Active Substance: AMOXICILLIN
     Dosage: 1 G, EVERY 0.33 DAY
     Route: 048
     Dates: start: 20190725, end: 20190801
  22. CERNEVIT [Concomitant]
     Active Substance: VITAMINS
     Dosage: 100 ML
     Route: 042
     Dates: start: 20170821, end: 20170821
  23. CLORFENAMINA MALEATO [Concomitant]
     Dosage: 10 MG, EVERY 3 WEEKS
     Route: 030
     Dates: start: 20170407, end: 20190509
  24. DEXAMETHASONE [Concomitant]
     Active Substance: DEXAMETHASONE
     Dosage: UNK; EVERY 3 WEEKS; ONGOING = NOT CHECKED
     Route: 042
     Dates: start: 20170407, end: 20190808
  25. DEXAMETHASONE [Concomitant]
     Active Substance: DEXAMETHASONE
     Dosage: 8 MG
     Route: 042
     Dates: start: 20171116, end: 20171116
  26. DIAZEPAM [Concomitant]
     Active Substance: DIAZEPAM
     Indication: Anxiety
     Dosage: 10 DROP
     Route: 048
     Dates: start: 20170513, end: 20170515
  27. DULOXETINE [Concomitant]
     Active Substance: DULOXETINE
     Dosage: 12.5 MG, QD, ONGOING = NOT CHECKED
     Route: 048
     Dates: end: 20190913
  28. ENOXAPARIN [Concomitant]
     Active Substance: ENOXAPARIN
     Dosage: 4000 IU, QD (ONGOING = NOT CHECKED)
     Route: 058
     Dates: start: 20190613, end: 20190913
  29. HYALURONIC ACID [Concomitant]
     Active Substance: HYALURONIC ACID
     Dosage: UNK, QD
     Route: 061
     Dates: start: 20171005, end: 20171207
  30. HYDROCHLOROTHIAZIDE [Concomitant]
     Active Substance: HYDROCHLOROTHIAZIDE
     Dosage: 12.5 MG; ONGOING = NOT CHECKED
     Route: 048
     Dates: end: 20190913
  31. KCL [Concomitant]
     Active Substance: POTASSIUM CHLORIDE
     Dosage: 600 MG, QD
     Route: 048
     Dates: start: 20170515, end: 20170526
  32. LANSOPRAZOLE [Concomitant]
     Active Substance: LANSOPRAZOLE
     Indication: Upper gastrointestinal haemorrhage
     Dosage: 30 MG, QD
     Route: 048
     Dates: start: 20170513, end: 20170529
  33. LOPERAMIDE [Concomitant]
     Active Substance: LOPERAMIDE
     Indication: Diarrhoea
     Dosage: 2 MG
     Route: 048
     Dates: start: 20170513, end: 20170526
  34. LOPERAMIDE [Concomitant]
     Active Substance: LOPERAMIDE
     Dosage: 4 MG, QD
     Route: 048
     Dates: start: 20170504, end: 20170504
  35. METHYLPREDNISOLONE [Concomitant]
     Active Substance: METHYLPREDNISOLONE
     Indication: Arthralgia
     Dosage: 16 MG, QD
     Route: 048
     Dates: start: 20171116, end: 20171207
  36. MORPHINE SULFATE [Concomitant]
     Active Substance: MORPHINE SULFATE
     Indication: Pain
     Dosage: 10 MG
     Route: 048
     Dates: start: 20190608, end: 20190913
  37. NORVASC [Concomitant]
     Active Substance: AMLODIPINE BESYLATE
     Dosage: 5 MG; ONGOING = NOT CHECKED
     Route: 048
     Dates: end: 20190913
  38. OMEPRAZOLE [Concomitant]
     Active Substance: OMEPRAZOLE
     Indication: Upper gastrointestinal haemorrhage
     Dosage: 40 MG, EVERY 0.5 DAY
     Route: 042
     Dates: start: 20170508, end: 20170513
  39. ONDANSETRON [Concomitant]
     Active Substance: ONDANSETRON
     Indication: Nausea
     Dosage: 8 MG
     Route: 042
     Dates: start: 20190622, end: 20190704
  40. OXYCODONE [Concomitant]
     Active Substance: OXYCODONE
     Indication: Pain
     Dosage: 5 MG, EVERY 0.5 DAY (ONGOING = NOT CHECKED)
     Route: 048
     Dates: start: 20190608, end: 20190913
  41. PANTOPRAZOLE [Concomitant]
     Active Substance: PANTOPRAZOLE
     Indication: Gastritis
     Dosage: 80 MG, QD
     Route: 048
     Dates: start: 20170606, end: 20190530
  42. PANTOPRAZOLE SODIUM [Concomitant]
     Active Substance: PANTOPRAZOLE SODIUM
     Dosage: UNK
     Route: 042
     Dates: start: 20170530, end: 20170601
  43. ACETAMINOPHEN [Concomitant]
     Active Substance: ACETAMINOPHEN
     Indication: Back pain
     Dosage: UNK; ONGOING = NOT CHECKED
     Route: 048
     Dates: start: 20170825, end: 20190913
  44. ACETAMINOPHEN [Concomitant]
     Active Substance: ACETAMINOPHEN
     Dosage: 500 MG, EVERY 3 WEEKS
     Route: 048
     Dates: start: 20170407, end: 20180829
  45. PLAVIX [Concomitant]
     Active Substance: CLOPIDOGREL BISULFATE
     Dosage: 75 MG
     Route: 048
     Dates: start: 20170508
  46. PREDNISONE [Concomitant]
     Active Substance: PREDNISONE
     Indication: Asthenia
     Dosage: 25 MG, QD (ONGOING = NOT CHECKED)
     Route: 048
     Dates: start: 20190530, end: 20190913
  47. PREDNISONE [Concomitant]
     Active Substance: PREDNISONE
     Dosage: 100 MG, QD
     Route: 048
     Dates: start: 20170406, end: 20170519
  48. RANITIDINE [Concomitant]
     Active Substance: RANITIDINE
     Indication: Gastritis
     Dosage: 150 MG, EVERY 0.5 DAY (ONGOING = NOT CHECKED)
     Route: 048
     Dates: start: 20190530, end: 20190913
  49. SUCRALFATE [Concomitant]
     Active Substance: SUCRALFATE
     Indication: Upper gastrointestinal haemorrhage
     Dosage: 20 G, EVERY 0.33 DAY
     Route: 048
     Dates: start: 20170508, end: 20170529
  50. TELMISARTAN [Concomitant]
     Active Substance: TELMISARTAN
     Dosage: 80 MG; ONGOING = NOT CHECKED
     Route: 048
     Dates: end: 20190913
  51. DEXAMETHASONE\TOBRAMYCIN [Concomitant]
     Active Substance: DEXAMETHASONE\TOBRAMYCIN
     Indication: Conjunctivitis
     Dosage: 3 DROP, QD
     Route: 061
     Dates: start: 20170914, end: 20170919
  52. TRANEXAMIC ACID [Concomitant]
     Active Substance: TRANEXAMIC ACID
     Indication: Upper gastrointestinal haemorrhage
     Dosage: 500 MG, EVERY 0.33 DAY
     Route: 048
     Dates: start: 20170508, end: 20170515
  53. ACETAMINOPHEN\CODEINE PHOSPHATE [Concomitant]
     Active Substance: ACETAMINOPHEN\CODEINE PHOSPHATE
     Indication: Arthralgia
     Dosage: 80 MG, QD
     Route: 048
     Dates: start: 20171116, end: 20171206
  54. POTASSIUM [Concomitant]
     Active Substance: POTASSIUM
     Indication: Diarrhoea
     Dosage: 600 MG EVERY 0.5 DAY
     Route: 048
     Dates: start: 20190709, end: 20190712
  55. SODIUM ALGINATE\SODIUM BICARBONATE [Concomitant]
     Active Substance: SODIUM ALGINATE\SODIUM BICARBONATE
     Indication: Gastritis
     Dosage: 767 MG, QD
     Route: 048
     Dates: start: 20170606, end: 20170616

REACTIONS (2)
  - Pain [Recovered/Resolved]
  - Off label use [Unknown]

NARRATIVE: CASE EVENT DATE: 20190902
